FAERS Safety Report 12189550 (Version 1)
Quarter: 2016Q1

REPORT INFORMATION
  Report Type: Spontaneous
  Country: US (occurrence: US)
  Receive Date: 20160318
  Receipt Date: 20160318
  Transmission Date: 20160526
  Serious: No
  Sender: FDA-Public Use
  Company Number: US-ASTRAZENECA-2016SE26361

PATIENT
  Sex: Female

DRUGS (3)
  1. PROTONIX [Concomitant]
     Active Substance: PANTOPRAZOLE SODIUM
  2. PRILOSEC [Suspect]
     Active Substance: OMEPRAZOLE MAGNESIUM
     Route: 048
  3. KLONOPIN [Interacting]
     Active Substance: CLONAZEPAM
     Route: 065

REACTIONS (3)
  - Drug withdrawal syndrome [Unknown]
  - Drug effect increased [Unknown]
  - Drug interaction [Unknown]
